FAERS Safety Report 22235170 (Version 1)
Quarter: 2023Q2

REPORT INFORMATION
  Report Type: Spontaneous
  Country: ZA (occurrence: ZA)
  Receive Date: 20230420
  Receipt Date: 20230420
  Transmission Date: 20230722
  Serious: Yes (Life-Threatening, Other)
  Sender: FDA-Public Use
  Company Number: ZA-PFIZER INC-PV202300070601

PATIENT
  Age: 66 Month
  Sex: Female

DRUGS (8)
  1. CYTARABINE [Suspect]
     Active Substance: CYTARABINE
     Indication: Leukaemia
     Dosage: ON THE FIFTH DAY, A FIVE-DAY COURSE
     Route: 042
  2. CYTARABINE [Suspect]
     Active Substance: CYTARABINE
     Dosage: ON THE 21ST DAY, A SECOND COURSE, INFUSED OVER 12 HOURS, TWICE DAILY
     Route: 042
  3. CYTARABINE [Suspect]
     Active Substance: CYTARABINE
     Dosage: ON THE 24TH DAY, THE SIXTH DOSE OF THIS COURSE
     Route: 042
  4. DAUNORUBICIN HYDROCHLORIDE [Concomitant]
     Active Substance: DAUNORUBICIN HYDROCHLORIDE
     Indication: Leukaemia
     Dosage: ON THE FIFTH DAY,SINGLE DOSE
  5. THIOGUANINE [Concomitant]
     Active Substance: THIOGUANINE
     Indication: Leukaemia
     Dosage: ON THE FIFTH DAY, FIVE-DAY COURSE
     Route: 048
  6. THIOGUANINE [Concomitant]
     Active Substance: THIOGUANINE
     Dosage: ON THE 21ST DAY, A SECOND COURSE
     Route: 048
  7. PIPERACILLIN SODIUM [Concomitant]
     Active Substance: PIPERACILLIN SODIUM
  8. AMIKACIN SULFATE [Concomitant]
     Active Substance: AMIKACIN SULFATE

REACTIONS (1)
  - Anaphylactic shock [Unknown]
